FAERS Safety Report 6579495-3 (Version None)
Quarter: 2010Q1

REPORT INFORMATION
  Report Type: 
  Country: None (occurrence: None)
  Receive Date: 20100212
  Receipt Date: 20100203
  Transmission Date: 20100710
  Serious: Yes (Hospitalization)
  Sender: FDA-Public Use
  Company Number: US-ASTRAZENECA-2010SE04847

PATIENT
  Sex: Female

DRUGS (2)
  1. NEXIUM [Suspect]
     Indication: HIATUS HERNIA
     Dosage: DAILY
     Route: 048
     Dates: start: 20070101
  2. NEXIUM [Suspect]
     Dosage: BID
     Route: 048
     Dates: start: 20090101

REACTIONS (7)
  - ABDOMINAL DISTENSION [None]
  - ERUCTATION [None]
  - GALLBLADDER OPERATION [None]
  - GASTRIC DISORDER [None]
  - HIATUS HERNIA [None]
  - THROAT IRRITATION [None]
  - VOMITING [None]
